FAERS Safety Report 10713087 (Version 1)
Quarter: 2015Q1

REPORT INFORMATION
  Report Type: Spontaneous
  Country: US (occurrence: None)
  Receive Date: 20150114
  Receipt Date: 20150114
  Transmission Date: 20150721
  Serious: Yes (Other)
  Sender: FDA-Public Use
  Company Number: None

PATIENT
  Age: 36 Year
  Sex: Male
  Weight: 147.42 kg

DRUGS (1)
  1. ADDERALL [Suspect]
     Active Substance: AMPHETAMINE ASPARTATE\AMPHETAMINE SULFATE\DEXTROAMPHETAMINE SACCHARATE\DEXTROAMPHETAMINE SULFATE
     Indication: ATTENTION DEFICIT/HYPERACTIVITY DISORDER
     Dosage: 90 TABS A MONTH
     Route: 048
     Dates: start: 20150108, end: 20150112

REACTIONS (7)
  - Headache [None]
  - Hypoaesthesia [None]
  - Somnolence [None]
  - Feeling abnormal [None]
  - Product quality issue [None]
  - Product substitution issue [None]
  - Lethargy [None]

NARRATIVE: CASE EVENT DATE: 20150108
